FAERS Safety Report 5752295-X (Version None)
Quarter: 2008Q2

REPORT INFORMATION
  Report Type: 
  Country: None (occurrence: None)
  Receive Date: 20080529
  Receipt Date: 20080519
  Transmission Date: 20081010
  Serious: Yes (Hospitalization)
  Sender: FDA-Public Use
  Company Number: FR-ABBOTT-94P-056-0024097-00

PATIENT
  Age: 59 Year
  Sex: Female

DRUGS (2)
  1. FENOFIBRATE (LIPANTHYL) [Suspect]
     Indication: HYPERCHOLESTEROLAEMIA
     Route: 048
     Dates: start: 19901101, end: 19910301
  2. FENOFIBRATE (LIPANTHYL) [Suspect]
     Dates: start: 19910301, end: 19920210

REACTIONS (5)
  - ASTHENIA [None]
  - HEPATIC FUNCTION ABNORMAL [None]
  - HEPATITIS CHRONIC ACTIVE [None]
  - JAUNDICE [None]
  - PRURITUS [None]
